FAERS Safety Report 21565806 (Version 3)
Quarter: 2022Q4

REPORT INFORMATION
  Report Type: Report from Study
  Country: AR (occurrence: AR)
  Receive Date: 20221108
  Receipt Date: 20221207
  Transmission Date: 20230112
  Serious: Yes (Hospitalization)
  Sender: FDA-Public Use
  Company Number: AR-AMGEN-ARGSL2022151933

PATIENT
  Age: 82 Year
  Sex: Female

DRUGS (1)
  1. VECTIBIX [Suspect]
     Active Substance: PANITUMUMAB
     Indication: Colorectal cancer metastatic
     Dosage: UNK, Q2WK (EVERY 14 DAYS)
     Route: 065
     Dates: start: 20220816, end: 20221130

REACTIONS (10)
  - Dizziness [Unknown]
  - Asthenia [Unknown]
  - Decreased appetite [Unknown]
  - Pyrexia [Unknown]
  - Weight decreased [Not Recovered/Not Resolved]
  - Hypertension [Unknown]
  - Herpes zoster [Unknown]
  - Tremor [Unknown]
  - Liver disorder [Not Recovered/Not Resolved]
  - Palliative care [Not Recovered/Not Resolved]

NARRATIVE: CASE EVENT DATE: 20220101
